FAERS Safety Report 22362149 (Version 1)
Quarter: 2023Q2

REPORT INFORMATION
  Report Type: Spontaneous
  Country: BE (occurrence: BE)
  Receive Date: 20230524
  Receipt Date: 20230524
  Transmission Date: 20230721
  Serious: Yes (Other)
  Sender: FDA-Public Use
  Company Number: BE-ELI_LILLY_AND_COMPANY-BE202305008825

PATIENT
  Age: 59 Year
  Sex: Female

DRUGS (1)
  1. TALTZ [Suspect]
     Active Substance: IXEKIZUMAB
     Indication: Palmoplantar pustulosis
     Dosage: UNK UNK, OTHER (ONCE EVERY FOUR WEEK)
     Route: 065
     Dates: start: 202204

REACTIONS (2)
  - Transitional cell carcinoma [Unknown]
  - Off label use [Unknown]
